FAERS Safety Report 22954106 (Version 2)
Quarter: 2023Q4

REPORT INFORMATION
  Report Type: Spontaneous
  Country: US (occurrence: US)
  Receive Date: 20230918
  Receipt Date: 20231004
  Transmission Date: 20240110
  Serious: Yes (Other)
  Sender: FDA-Public Use
  Company Number: US-FreseniusKabi-FK202314458

PATIENT
  Age: 40 Year
  Sex: Male
  Weight: 112 kg

DRUGS (6)
  1. PROTAMINE SULFATE [Suspect]
     Active Substance: PROTAMINE SULFATE
     Indication: Procoagulant therapy
     Dosage: DOSAGE - 250MG/25ML (TOTAL OF 300MG/30ML ONCE)?PROTAMINE 250MG IV AT 1129 OVER 10MINUTES
     Route: 042
     Dates: start: 20230911, end: 20230911
  2. PROTAMINE SULFATE [Suspect]
     Active Substance: PROTAMINE SULFATE
     Dosage: DOSAGE - 50MG/5ML (TOTAL OF 300MG/30ML ONCE)?PROTAMINE 50MG IV AT 1129 OVER 10MINUTES         ?PROTA
     Route: 042
     Dates: start: 20230911, end: 20230911
  3. HEPARIN [Suspect]
     Active Substance: HEPARIN SODIUM
     Indication: Cardiopulmonary bypass
     Dosage: 30,000 UNITS/30ML VIAL ?HEPARIN 10,000 UNITS IV AT 0853     ?HEPARIN 27,000 UNITS IV AT 0904     ?HE
     Route: 042
  4. SOLU-MEDROL [Concomitant]
     Active Substance: METHYLPREDNISOLONE SODIUM SUCCINATE
     Indication: Product used for unknown indication
     Route: 042
  5. BENADRYL [Concomitant]
     Active Substance: DIPHENHYDRAMINE HYDROCHLORIDE
     Indication: Product used for unknown indication
     Route: 042
  6. PEPCID [Concomitant]
     Active Substance: FAMOTIDINE
     Indication: Product used for unknown indication
     Route: 042

REACTIONS (5)
  - Hypersensitivity [Recovering/Resolving]
  - Tachycardia [Recovering/Resolving]
  - Hypotension [Recovering/Resolving]
  - Thrombosis [Recovering/Resolving]
  - Off label use [Unknown]

NARRATIVE: CASE EVENT DATE: 20230911
